FAERS Safety Report 16452443 (Version 1)
Quarter: 2019Q2

REPORT INFORMATION
  Report Type: Spontaneous
  Country: US (occurrence: US)
  Receive Date: 20190619
  Receipt Date: 20190619
  Transmission Date: 20190711
  Serious: No
  Sender: FDA-Public Use
  Company Number: US-ROCHE-2128221

PATIENT
  Age: 57 Year
  Sex: Female
  Weight: 176 kg

DRUGS (12)
  1. BREO ELLIPTA [Concomitant]
     Active Substance: FLUTICASONE FUROATE\VILANTEROL TRIFENATATE
  2. FOLIC ACID. [Concomitant]
     Active Substance: FOLIC ACID
  3. ONDANSETRON [Concomitant]
     Active Substance: ONDANSETRON
  4. BUPROPION. [Concomitant]
     Active Substance: BUPROPION
  5. ALBUTEROL [SALBUTAMOL] [Concomitant]
     Active Substance: ALBUTEROL
  6. DULOXETINE. [Concomitant]
     Active Substance: DULOXETINE
  7. DUONEB [Concomitant]
     Active Substance: ALBUTEROL SULFATE\IPRATROPIUM BROMIDE
  8. ACTEMRA [Suspect]
     Active Substance: TOCILIZUMAB
     Indication: RHEUMATOID ARTHRITIS
     Dosage: EVERY OTHER WEEK
     Route: 065
     Dates: start: 20180202, end: 20180320
  9. METHOTREXATE. [Concomitant]
     Active Substance: METHOTREXATE
  10. HYDROCODONE NOS/PARACETAMOL [Concomitant]
  11. OMEPRAZOLE. [Concomitant]
     Active Substance: OMEPRAZOLE
  12. SULFASALAZINE. [Concomitant]
     Active Substance: SULFASALAZINE

REACTIONS (2)
  - Asthenia [Recovered/Resolved]
  - Dizziness [Recovered/Resolved]

NARRATIVE: CASE EVENT DATE: 20180209
